FAERS Safety Report 8499308-2 (Version None)
Quarter: 2012Q3

REPORT INFORMATION
  Report Type: 
  Country: None (occurrence: None)
  Receive Date: 20120710
  Receipt Date: 20120705
  Transmission Date: 20120928
  Serious: Yes (Hospitalization, Other)
  Sender: FDA-Public Use
  Company Number: US-AMGEN-USASP2011013330

PATIENT
  Age: 73 Year
  Sex: Female
  Weight: 85.261 kg

DRUGS (1)
  1. ENBREL [Suspect]
     Indication: RHEUMATOID ARTHRITIS
     Dosage: 50 MG, QWK
     Dates: start: 20070331

REACTIONS (11)
  - STAPHYLOCOCCAL INFECTION [None]
  - VAGINAL INFECTION [None]
  - FALL [None]
  - HERPES DERMATITIS [None]
  - BURSITIS [None]
  - PAIN [None]
  - ARTHRITIS INFECTIVE [None]
  - COUGH [None]
  - SKIN ULCER [None]
  - INFLUENZA [None]
  - CELLULITIS [None]
